FAERS Safety Report 4385446-2 (Version None)
Quarter: 2004Q2

REPORT INFORMATION
  Report Type: 
  Country: None (occurrence: None)
  Receive Date: 20040622
  Receipt Date: 20040614
  Transmission Date: 20050107
  Serious: Yes (Disabling, Other)
  Sender: FDA-Public Use
  Company Number: 093270

PATIENT
  Age: 13 Year
  Sex: Male

DRUGS (1)
  1. NUTROPIN [Suspect]
     Indication: RENAL FAILURE CHRONIC
     Dosage: 1.3 MG, QD, SUBCUTANEOUS
     Route: 058
     Dates: start: 19980606

REACTIONS (1)
  - DIABETES MELLITUS [None]
